FAERS Safety Report 6211594-8 (Version None)
Quarter: 2009Q2

REPORT INFORMATION
  Report Type: 
  Country: None (occurrence: None)
  Receive Date: 20090602
  Receipt Date: 20090520
  Transmission Date: 20091009
  Serious: Yes (Disabling)
  Sender: FDA-Public Use
  Company Number: GB-PURDUE-GBR-2009-0005169

PATIENT

DRUGS (16)
  1. TARGINACT 20MG/10MG [Suspect]
     Indication: ANALGESIA
     Dosage: 20 MG, BID
     Route: 048
     Dates: start: 20090429, end: 20090501
  2. OXYCODONE HYDROCHLORIDE [Suspect]
     Indication: ANALGESIA
     Dosage: 20 MG, BID
     Route: 048
     Dates: start: 20090429, end: 20090501
  3. AMITRIPTLINE HYDROCHLORIDE TAB [Concomitant]
     Indication: DRUG USE FOR UNKNOWN INDICATION
     Dosage: 40 MG, DAILY
     Route: 065
  4. CREON                              /00014701/ [Concomitant]
     Indication: DRUG USE FOR UNKNOWN INDICATION
     Dosage: 1 DF, TID
  5. DOCUSATE [Concomitant]
     Indication: DRUG USE FOR UNKNOWN INDICATION
     Dosage: 200 MG, BID
     Route: 048
  6. ESOMEPRAZOLE MAGNESIUM [Concomitant]
     Indication: DRUG USE FOR UNKNOWN INDICATION
     Dosage: 40 MG, DAILY
     Route: 065
  7. GABAPENTIN [Concomitant]
     Indication: DRUG USE FOR UNKNOWN INDICATION
     Dosage: 300 MG, TID
     Route: 065
  8. KLIOFEM [Concomitant]
     Indication: DRUG USE FOR UNKNOWN INDICATION
     Dosage: 1 DF, DAILY
     Route: 065
  9. LAMOTRIGINE [Concomitant]
     Indication: DRUG USE FOR UNKNOWN INDICATION
     Dosage: 100 MG, BID
     Route: 048
  10. METOCLOPRAMIDE [Concomitant]
     Indication: DRUG USE FOR UNKNOWN INDICATION
     Dosage: 10 MG, TID
     Route: 065
  11. MORPHINE SULFATE [Concomitant]
     Indication: DRUG USE FOR UNKNOWN INDICATION
     Dosage: 90 MG, BID
     Route: 065
  12. NITROFURANTOIN [Concomitant]
     Indication: DRUG USE FOR UNKNOWN INDICATION
     Dosage: 100 MG, DAILY
     Route: 048
  13. PARACETAMOL [Concomitant]
     Indication: DRUG USE FOR UNKNOWN INDICATION
     Dosage: 1 G, QID
     Route: 065
  14. PHENYTOIN [Concomitant]
     Indication: DRUG USE FOR UNKNOWN INDICATION
     Dosage: 350 MG, DAILY
     Route: 048
  15. QUININE [Concomitant]
     Indication: DRUG USE FOR UNKNOWN INDICATION
     Dosage: 300 MG, DAILY
     Route: 048
  16. SANATOGEN [Concomitant]
     Indication: DRUG USE FOR UNKNOWN INDICATION
     Dosage: 1 DF, DAILY
     Route: 065

REACTIONS (3)
  - DYSPHAGIA [None]
  - DYSPNOEA [None]
  - MUSCLE SPASMS [None]
